FAERS Safety Report 8020319-5 (Version None)
Quarter: 2012Q1

REPORT INFORMATION
  Report Type: 
  Country: None (occurrence: None)
  Receive Date: 20120103
  Receipt Date: 20111219
  Transmission Date: 20120608
  Serious: Yes (Death)
  Sender: FDA-Public Use
  Company Number: US-PFIZER INC-2011309667

PATIENT
  Age: 61 Year
  Sex: Male

DRUGS (4)
  1. ALPRAZOLAM [Suspect]
  2. MECLIZINE [Suspect]
  3. DOXEPIN HCL [Suspect]
  4. ACETAMINOPHEN AND HYDROCODONE BITARTRATE [Suspect]

REACTIONS (3)
  - RESPIRATORY ARREST [None]
  - COMPLETED SUICIDE [None]
  - CARDIAC ARREST [None]
